FAERS Safety Report 6522043-4 (Version None)
Quarter: 2009Q4

REPORT INFORMATION
  Report Type: 
  Country: None (occurrence: None)
  Receive Date: 20091224
  Receipt Date: 20091221
  Transmission Date: 20100525
  Serious: Yes (Hospitalization)
  Sender: FDA-Public Use
  Company Number: 2009AC000118

PATIENT
  Age: 50 Year
  Sex: Male

DRUGS (42)
  1. DIGOXIN [Suspect]
     Dosage: 250 MCG; PO
     Route: 048
     Dates: start: 20020521, end: 20060312
  2. KLOR-CON [Concomitant]
  3. THEOPHYLLINE [Concomitant]
  4. GLUCOVANCE [Concomitant]
  5. SEREVENT [Concomitant]
  6. ACETAZOLAMIDE [Concomitant]
  7. FUROSEMIDE [Concomitant]
  8. SYNTHROID [Concomitant]
  9. NEPHRO-VITE [Concomitant]
  10. WELLBUTRIN [Concomitant]
  11. LOTENSIN [Concomitant]
  12. SINGULAIR [Concomitant]
  13. ALBUTEROL [Concomitant]
  14. ATROVENT [Concomitant]
  15. IBUPROFEN [Concomitant]
  16. MUPIROCIN 2% OINTMENT [Concomitant]
  17. BENAZEPRIL HYDROCHLORIDE [Concomitant]
  18. LEVOTHYROXINE SODIUM [Concomitant]
  19. PHENYTOIN SODIUM [Concomitant]
  20. ASPIRIN [Concomitant]
  21. FERROUS SULFATE TAB [Concomitant]
  22. ACTOS [Concomitant]
  23. RENAGEL [Concomitant]
  24. HYDROXYZINE [Concomitant]
  25. OMNICEF [Concomitant]
  26. IPRATROPIUM BR [Concomitant]
  27. COMBIVENT [Concomitant]
  28. MAGNESIUM OXIDE [Concomitant]
  29. NICOTINE [Concomitant]
  30. WARFARIN SODIUM [Concomitant]
  31. POLYETHYLENE GLYCOL [Concomitant]
  32. PREVACID [Concomitant]
  33. METOCLOPRAMIDE [Concomitant]
  34. FLUCONAZOLE [Concomitant]
  35. SULFAMETHOXAZOLE AND TRIMETHOPRIM [Concomitant]
  36. AMMONIUM LACTATE [Concomitant]
  37. DOXYCYCLINE HYCLATE [Concomitant]
  38. IPRATR-ALBUTEROL [Concomitant]
  39. SPIRIVA [Concomitant]
  40. METHYLPREDNISOLONE [Concomitant]
  41. AMMONIUM LACTATE [Concomitant]
  42. PROAIR HFA [Concomitant]

REACTIONS (28)
  - ACUTE RESPIRATORY FAILURE [None]
  - ANAEMIA OF CHRONIC DISEASE [None]
  - ARTERIOSCLEROSIS [None]
  - ASTHMA [None]
  - BRONCHITIS CHRONIC [None]
  - BURNING SENSATION [None]
  - CARDIAC FAILURE CONGESTIVE [None]
  - CHRONIC OBSTRUCTIVE PULMONARY DISEASE [None]
  - CHRONIC RESPIRATORY DISEASE [None]
  - CONDITION AGGRAVATED [None]
  - COUGH [None]
  - DIABETES MELLITUS INADEQUATE CONTROL [None]
  - DIABETIC NEPHROPATHY [None]
  - DYSPNOEA [None]
  - ECONOMIC PROBLEM [None]
  - EMPHYSEMA [None]
  - HYPERCAPNIA [None]
  - HYPERTENSIVE HEART DISEASE [None]
  - HYPONATRAEMIA [None]
  - HYPOTHYROIDISM [None]
  - LEFT VENTRICULAR HYPERTROPHY [None]
  - LOBAR PNEUMONIA [None]
  - MULTIPLE INJURIES [None]
  - OEDEMA PERIPHERAL [None]
  - PARTNER STRESS [None]
  - PNEUMONIA STREPTOCOCCAL [None]
  - PRODUCTIVE COUGH [None]
  - RENAL FAILURE CHRONIC [None]
